FAERS Safety Report 4374901-7 (Version None)
Quarter: 2004Q2

REPORT INFORMATION
  Report Type: 
  Country: None (occurrence: None)
  Receive Date: 20040604
  Receipt Date: 20040524
  Transmission Date: 20050107
  Serious: Yes (Hospitalization)
  Sender: FDA-Public Use
  Company Number: 2004024356

PATIENT
  Sex: Male

DRUGS (2)
  1. PHENYTOIN SODIUM [Suspect]
     Indication: EPILEPSY
     Dosage: 50 MG (50 MG, DAILY INTERVAL:  EVERY DAY), ORAL
     Route: 048
  2. ANTIHISTAMINES (ANTIHISTAMINES) [Suspect]
     Indication: HYPERSENSITIVITY

REACTIONS (5)
  - CONVULSION [None]
  - DERMATITIS ALLERGIC [None]
  - DRUG INTERACTION [None]
  - FALL [None]
  - RIB FRACTURE [None]
